FAERS Safety Report 6400738-0 (Version None)
Quarter: 2009Q4

REPORT INFORMATION
  Report Type: 
  Country: None (occurrence: None)
  Receive Date: 20091014
  Receipt Date: 20091007
  Transmission Date: 20100525
  Serious: Yes (Other)
  Sender: FDA-Public Use
  Company Number: FR-GILEAD-2009-0024680

PATIENT
  Sex: Male

DRUGS (7)
  1. TRUVADA [Suspect]
     Indication: DRUG USE FOR UNKNOWN INDICATION
     Dates: end: 20090813
  2. KALETRA [Concomitant]
     Route: 048
     Dates: start: 20050101
  3. TRIATEC [Concomitant]
  4. LOPERAMIDE [Concomitant]
  5. OSTRAM [Concomitant]
  6. PHOSPHORUS [Concomitant]
  7. AREDIA [Concomitant]

REACTIONS (2)
  - FANCONI SYNDROME ACQUIRED [None]
  - RENAL FAILURE CHRONIC [None]
